FAERS Safety Report 6159085-7 (Version None)
Quarter: 2009Q2

REPORT INFORMATION
  Report Type: 
  Country: None (occurrence: None)
  Receive Date: 20090417
  Receipt Date: 20090410
  Transmission Date: 20091009
  Serious: Yes (Hospitalization)
  Sender: FDA-Public Use
  Company Number: PHHO2009FR01182

PATIENT
  Sex: Female
  Weight: 63.5 kg

DRUGS (1)
  1. ERL 080A ERL+TAB [Suspect]
     Indication: RENAL TRANSPLANT
     Dosage: 1440 MG / DAY
     Route: 048
     Dates: start: 20080822

REACTIONS (3)
  - ASTHENIA [None]
  - DIARRHOEA [None]
  - PNEUMOPERITONEUM [None]
